FAERS Safety Report 11643684 (Version 1)
Quarter: 2015Q4

REPORT INFORMATION
  Report Type: Spontaneous
  Country: BR (occurrence: BR)
  Receive Date: 20151020
  Receipt Date: 20151020
  Transmission Date: 20160304
  Serious: Yes (Life-Threatening)
  Sender: FDA-Public Use
  Company Number: BR-PFIZER INC-2015345304

PATIENT
  Sex: Female

DRUGS (1)
  1. CHAMPIX [Suspect]
     Active Substance: VARENICLINE TARTRATE
     Dosage: UNK
     Dates: start: 20151001

REACTIONS (6)
  - Hypersensitivity [Unknown]
  - Dysphonia [Unknown]
  - Oral disorder [Unknown]
  - Laryngeal oedema [Unknown]
  - Pharyngeal oedema [Unknown]
  - Swollen tongue [Unknown]
